FAERS Safety Report 5232155-3 (Version None)
Quarter: 2007Q1

REPORT INFORMATION
  Report Type: 
  Country: None (occurrence: None)
  Receive Date: 20061205
  Receipt Date: 20060824
  Transmission Date: 20070707
  Serious: No
  Sender: FDA-Public Use
  Company Number: PHEH2006US11136

PATIENT
  Age: 25 Year
  Sex: Female

DRUGS (1)
  1. EXJADE [Suspect]
     Indication: IRON OVERLOAD
     Dosage: 2000 MG,QD,ORAL
     Route: 048
     Dates: start: 20060110, end: 20060824

REACTIONS (3)
  - OEDEMA [None]
  - RASH [None]
  - STOMACH DISCOMFORT [None]
